FAERS Safety Report 5299525-9 (Version None)
Quarter: 2007Q2

REPORT INFORMATION
  Report Type: 
  Country: None (occurrence: None)
  Receive Date: 20070410
  Receipt Date: 20070328
  Transmission Date: 20071010
  Serious: Yes (Hospitalization)
  Sender: FDA-Public Use
  Company Number: A0637258A

PATIENT
  Age: 17 Year
  Sex: Male
  Weight: 147.8726 kg

DRUGS (3)
  1. LAMICTAL [Suspect]
     Indication: CONVULSION
     Dosage: 250 MG / TWICE PER DAY / ORAL
     Route: 048
     Dates: start: 20030618, end: 20050921
  2. CEFADROXIL [Concomitant]
  3. CLARITIN-D [Concomitant]

REACTIONS (6)
  - ANTI-HBS ANTIBODY POSITIVE [None]
  - APLASTIC ANAEMIA [None]
  - FEBRILE NEUTROPENIA [None]
  - MUSCULAR WEAKNESS [None]
  - PANCYTOPENIA [None]
  - PETECHIAE [None]
